FAERS Safety Report 7226700-6 (Version None)
Quarter: 2011Q1

REPORT INFORMATION
  Report Type: 
  Country: None (occurrence: None)
  Receive Date: 20110114
  Receipt Date: 20110111
  Transmission Date: 20110831
  Serious: Yes (Hospitalization)
  Sender: FDA-Public Use
  Company Number: FR-ABBOTT-11P-056-0696528-00

PATIENT
  Age: 59 Year
  Sex: Female

DRUGS (1)
  1. LIPANTHYL [Suspect]
     Indication: HYPERLIPIDAEMIA
     Route: 048
     Dates: start: 20080620, end: 20080721

REACTIONS (1)
  - ERYTHEMA MULTIFORME [None]
